FAERS Safety Report 25392876 (Version 2)
Quarter: 2025Q3

REPORT INFORMATION
  Report Type: Spontaneous
  Country: GB (occurrence: GB)
  Receive Date: 20250604
  Receipt Date: 20250803
  Transmission Date: 20251020
  Serious: Yes (Other)
  Sender: ALEXION PHARMACEUTICALS
  Company Number: GB-MHRA-EMIS-9302-cd275693-2471-43f9-9cc8-49860b27f7ea

PATIENT
  Age: 61 Year
  Sex: Female
  Weight: 61 kg

DRUGS (2)
  1. DAPAGLIFLOZIN [Suspect]
     Active Substance: DAPAGLIFLOZIN
     Indication: Diabetes mellitus
     Dosage: 10 MILLIGRAM, QD (ONE TO BE TAKEN DAILY - ON HOLD 26/2/25 AS POSSIBLE SIDE EFFECTS)
     Route: 065
     Dates: start: 20241224, end: 20250312
  2. TRIMOVATE [Concomitant]
     Active Substance: CLOBETASONE BUTYRATE\NYSTATIN\OXYTETRACYCLINE CALCIUM
     Route: 065

REACTIONS (3)
  - Arthralgia [Recovered/Resolved]
  - Diarrhoea [Recovered/Resolved]
  - Rash [Recovered/Resolved]

NARRATIVE: CASE EVENT DATE: 20250212
